FAERS Safety Report 6230660-4 (Version None)
Quarter: 2009Q2

REPORT INFORMATION
  Report Type: 
  Country: None (occurrence: None)
  Receive Date: 20090611
  Receipt Date: 20090528
  Transmission Date: 20091009
  Serious: Yes (Hospitalization)
  Sender: FDA-Public Use
  Company Number: 000871

PATIENT
  Sex: Male
  Weight: 70 kg

DRUGS (5)
  1. VIMPAT [Suspect]
     Indication: EPILEPSY
     Dosage: (100 MG DAILY ORAL), (100 MG BID ORAL)
     Route: 048
     Dates: start: 20090403, end: 20090413
  2. VIMPAT [Suspect]
     Indication: EPILEPSY
     Dosage: (100 MG DAILY ORAL), (100 MG BID ORAL)
     Route: 048
     Dates: start: 20090413, end: 20090414
  3. VALPROATE SODIUM [Concomitant]
  4. TOPIRAMATE [Concomitant]
  5. LAMOTRIGINE [Concomitant]

REACTIONS (1)
  - GRAND MAL CONVULSION [None]
